FAERS Safety Report 13352016 (Version 1)
Quarter: 2017Q1

REPORT INFORMATION
  Report Type: Spontaneous
  Country: US (occurrence: US)
  Receive Date: 20170320
  Receipt Date: 20170320
  Transmission Date: 20170429
  Serious: No
  Sender: FDA-Public Use
  Company Number: US-SA-2016SA064165

PATIENT
  Age: 67 Year
  Sex: Female

DRUGS (1)
  1. NASACORT ALLERGY 24HR [Suspect]
     Active Substance: TRIAMCINOLONE ACETONIDE
     Indication: NASAL CONGESTION
     Dosage: DOSE AND DOSAGE: 2 SQUIRTS/NOSTRILS, START DATE: 3 NIGHTS
     Route: 065

REACTIONS (2)
  - Upper-airway cough syndrome [Unknown]
  - Nausea [Unknown]
